FAERS Safety Report 24091193 (Version 1)
Quarter: 2024Q3

REPORT INFORMATION
  Report Type: Other
  Country: CN (occurrence: CN)
  Receive Date: 20240715
  Receipt Date: 20240715
  Transmission Date: 20241016
  Serious: Yes (Hospitalization)
  Sender: ASTELLAS
  Company Number: CN-ASTELLAS-2024US019706

PATIENT
  Age: 76 Year
  Sex: Male

DRUGS (4)
  1. ISAVUCONAZOLE [Suspect]
     Active Substance: ISAVUCONAZOLE
     Indication: Biliary tract infection
     Route: 041
     Dates: start: 20240519, end: 20240608
  2. MEROPENEM [Suspect]
     Active Substance: MEROPENEM
     Indication: Biliary tract infection
     Dosage: 0.5 G, TWICE DAILY
     Route: 041
     Dates: start: 20240519, end: 20240528
  3. AVIBACTAM SODIUM\CEFTAZIDIME [Suspect]
     Active Substance: AVIBACTAM SODIUM\CEFTAZIDIME
     Indication: Biliary tract infection
     Dosage: 0.94 G + 0.9% SODIUM CHLORIDE INJECTION 45ML, TWICE DAILY
     Route: 065
     Dates: start: 20240528, end: 20240622
  4. SODIUM CHLORIDE [Concomitant]
     Active Substance: SODIUM CHLORIDE
     Indication: Product used for unknown indication
     Dosage: UNK UNK, UNKNOWN FREQ. (TAKEN FOR VEHICLE SOLUTION USE)
     Route: 065
     Dates: start: 20240519, end: 20240622

REACTIONS (3)
  - Dysbiosis [Unknown]
  - Diarrhoea [Unknown]
  - Off label use [Unknown]

NARRATIVE: CASE EVENT DATE: 20240519
